FAERS Safety Report 10266012 (Version 2)
Quarter: 2014Q3

REPORT INFORMATION
  Report Type: Spontaneous
  Country: US (occurrence: US)
  Receive Date: 20140627
  Receipt Date: 20140703
  Transmission Date: 20150326
  Serious: Yes (Other)
  Sender: FDA-Public Use
  Company Number: US-TEVA-491084USA

PATIENT
  Sex: Female

DRUGS (3)
  1. PLAN B ONE-STEP [Suspect]
     Active Substance: LEVONORGESTREL
     Dates: start: 20140617, end: 20140617
  2. PLAN B ONE-STEP [Suspect]
     Active Substance: LEVONORGESTREL
     Dates: start: 20140611, end: 20140611
  3. PLAN B ONE-STEP [Suspect]
     Active Substance: LEVONORGESTREL
     Indication: POST COITAL CONTRACEPTION
     Dates: start: 20140522, end: 20140522

REACTIONS (3)
  - Pregnancy after post coital contraception [Unknown]
  - Fatigue [Unknown]
  - Abdominal pain lower [Unknown]

NARRATIVE: CASE EVENT DATE: 201406
